FAERS Safety Report 5489099-1 (Version None)
Quarter: 2007Q4

REPORT INFORMATION
  Report Type: 
  Country: None (occurrence: None)
  Receive Date: 20071005
  Receipt Date: 20070719
  Transmission Date: 20080405
  Serious: Yes (Other)
  Sender: FDA-Public Use
  Company Number: PHEH2007US10176

PATIENT
  Sex: Female

DRUGS (2)
  1. TEKTURNA [Suspect]
     Dosage: 150, QD, ORAL
     Route: 048
  2. ANTIHYPERTENSIVES(NO INGREDIENTS/SUBSTANCES) [Suspect]

REACTIONS (1)
  - HYPOTENSION [None]
